FAERS Safety Report 8163424-5 (Version None)
Quarter: 2012Q1

REPORT INFORMATION
  Report Type: 
  Country: None (occurrence: None)
  Receive Date: 20120224
  Receipt Date: 20120223
  Transmission Date: 20120608
  Serious: Yes (Other)
  Sender: FDA-Public Use
  Company Number: TZ-BAYER-2012-015944

PATIENT
  Age: 58 Year
  Sex: Male
  Weight: 74 kg

DRUGS (5)
  1. MOXIFLOXACIN [Suspect]
     Dosage: 400 MG DAILY
     Dates: start: 20110815
  2. RIFAMPICIN [Suspect]
     Indication: PULMONARY TUBERCULOSIS
     Dosage: 600 MG DAILY
     Dates: start: 20110815
  3. ISONIAZID [Suspect]
     Indication: PULMONARY TUBERCULOSIS
     Dosage: 300 MG DAILY
     Dates: start: 20110815
  4. ETHAMBUTOL HYDROCHLORIDE [Suspect]
     Indication: PULMONARY TUBERCULOSIS
     Dosage: UNK
     Dates: start: 20110815
  5. PYRAZINAMIDE [Suspect]
     Indication: PULMONARY TUBERCULOSIS
     Dosage: 1500MG DAILY
     Dates: start: 20110815

REACTIONS (1)
  - VISUAL ACUITY REDUCED [None]
